FAERS Safety Report 19914760 (Version 1)
Quarter: 2021Q4

REPORT INFORMATION
  Report Type: Spontaneous
  Country: US (occurrence: US)
  Receive Date: 20211004
  Receipt Date: 20211004
  Transmission Date: 20220304
  Serious: No
  Sender: FDA-Public Use
  Company Number: US-OTSUKA-2020_006943

PATIENT
  Age: 36 Year
  Sex: Female

DRUGS (2)
  1. ARIPIPRAZOLE [Suspect]
     Active Substance: ARIPIPRAZOLE
     Indication: Product used for unknown indication
     Dosage: 15MG DAILY
     Route: 065
  2. INSULIN NOS [Concomitant]
     Active Substance: INSULIN NOS
     Indication: Diabetes mellitus
     Dosage: UNK, ADMINISTERED 4 TIMES A DAY
     Route: 065

REACTIONS (1)
  - Treatment noncompliance [Unknown]
